FAERS Safety Report 13179673 (Version 1)
Quarter: 2017Q1

REPORT INFORMATION
  Report Type: Spontaneous
  Country: US (occurrence: US)
  Receive Date: 20170202
  Receipt Date: 20170202
  Transmission Date: 20170428
  Serious: Yes (Disabling)
  Sender: FDA-Public Use
  Company Number: None

PATIENT
  Age: 41 Year
  Sex: Female
  Weight: 67.5 kg

DRUGS (4)
  1. CIPRO [Suspect]
     Active Substance: CIPROFLOXACIN HYDROCHLORIDE
     Indication: KIDNEY INFECTION
     Route: 048
     Dates: start: 20121129, end: 20121129
  2. CIPRO [Suspect]
     Active Substance: CIPROFLOXACIN HYDROCHLORIDE
     Indication: PNEUMONIA
     Route: 048
     Dates: start: 20121129, end: 20121129
  3. LEVAQUIN [Suspect]
     Active Substance: LEVOFLOXACIN
     Indication: PNEUMONIA
     Dosage: ?          OTHER ROUTE:INITIAL IV + PILL FORM?
     Dates: start: 20121129, end: 20121203
  4. ALKA-SELTZER CLOD AND FLU DAY AND NIGHT TIME [Concomitant]

REACTIONS (14)
  - Mobility decreased [None]
  - Fall [None]
  - Fatigue [None]
  - Gait disturbance [None]
  - Tendon pain [None]
  - Asthenia [None]
  - Myalgia [None]
  - Tinnitus [None]
  - Arthralgia [None]
  - Activities of daily living impaired [None]
  - Neuropathy peripheral [None]
  - Paraesthesia [None]
  - Balance disorder [None]
  - Feeling abnormal [None]

NARRATIVE: CASE EVENT DATE: 20121129
